FAERS Safety Report 13569814 (Version 3)
Quarter: 2017Q2

REPORT INFORMATION
  Report Type: Report from Study
  Country: US (occurrence: US)
  Receive Date: 20170522
  Receipt Date: 20170622
  Transmission Date: 20170830
  Serious: Yes (Other)
  Sender: FDA-Public Use
  Company Number: US-009507513-1705USA005358

PATIENT
  Age: 32 Year
  Sex: Female
  Weight: 115.65 kg

DRUGS (3)
  1. IMPLANON [Suspect]
     Active Substance: ETONOGESTREL
     Indication: CONTRACEPTION
     Dosage: 1 ROD / 3 YEARS, LEFT ARM
     Route: 059
     Dates: start: 20140612
  2. LEXAPRO [Concomitant]
     Active Substance: ESCITALOPRAM OXALATE
  3. LORAZEPAM. [Concomitant]
     Active Substance: LORAZEPAM

REACTIONS (6)
  - Haemorrhagic cyst [Not Recovered/Not Resolved]
  - Female sterilisation [Unknown]
  - Device deployment issue [Not Recovered/Not Resolved]
  - Uterine dilation and curettage [Unknown]
  - Endometrial ablation [Unknown]
  - Complication associated with device [Recovered/Resolved]

NARRATIVE: CASE EVENT DATE: 201701
